FAERS Safety Report 8852145 (Version 2)
Quarter: 2012Q4

REPORT INFORMATION
  Report Type: 
  Country: FR (occurrence: FR)
  Receive Date: 20121022
  Receipt Date: 20121108
  Transmission Date: 20130627
  Serious: Yes (Hospitalization)
  Sender: FDA-Public Use
  Company Number: FR-PFIZER INC-2012258568

PATIENT
  Age: 49 Year
  Sex: Female

DRUGS (5)
  1. ALDACTONE [Suspect]
     Dosage: UNK
  2. COTAREG [Suspect]
     Dosage: UNK
     Route: 048
  3. LERCAN [Concomitant]
     Dosage: UNK
  4. EUPRESSYL [Concomitant]
     Dosage: UNK
  5. CERAZETTE [Concomitant]
     Dosage: UNK

REACTIONS (3)
  - Toxic skin eruption [Recovered/Resolved]
  - Cutaneous lupus erythematosus [Recovered/Resolved]
  - Interstitial lung disease [Recovered/Resolved]
